FAERS Safety Report 7265163-1 (Version None)
Quarter: 2011Q1

REPORT INFORMATION
  Report Type: 
  Country: None (occurrence: None)
  Receive Date: 20110131
  Receipt Date: 20110124
  Transmission Date: 20110831
  Serious: Yes (Hospitalization, Other)
  Sender: FDA-Public Use
  Company Number: NL-MEDIMMUNE-MEDI-0012341

PATIENT
  Sex: Male

DRUGS (2)
  1. SYNAGIS [Suspect]
     Route: 030
     Dates: start: 20101004, end: 20101224
  2. SYNAGIS [Suspect]
     Route: 030
     Dates: start: 20110122

REACTIONS (2)
  - HYPOVENTILATION [None]
  - DYSPNOEA [None]
